FAERS Safety Report 18899684 (Version 2)
Quarter: 2021Q1

REPORT INFORMATION
  Report Type: Report from Study
  Country: CA (occurrence: CA)
  Receive Date: 20210216
  Receipt Date: 20210217
  Transmission Date: 20210420
  Serious: Yes (Hospitalization)
  Sender: FDA-Public Use
  Company Number: CA-JNJFOC-20201253410

PATIENT
  Age: 11 Year
  Sex: Male
  Weight: 31 kg

DRUGS (3)
  1. REMICADE [Suspect]
     Active Substance: INFLIXIMAB
     Dosage: ON 27?JAN?2021, PATIENT RECEIVED 800 MG REMICADE IN HOSPITAL.?ON 09?FEB?2021, THE PATIENT RECEIVED 5
     Route: 042
  2. REMICADE [Suspect]
     Active Substance: INFLIXIMAB
     Route: 042
  3. REMICADE [Suspect]
     Active Substance: INFLIXIMAB
     Indication: CROHN^S DISEASE
     Route: 042
     Dates: start: 20170307

REACTIONS (2)
  - Crohn^s disease [Unknown]
  - Illness [Unknown]

NARRATIVE: CASE EVENT DATE: 20201228
